FAERS Safety Report 24816089 (Version 1)
Quarter: 2025Q1

REPORT INFORMATION
  Report Type: Spontaneous
  Country: US (occurrence: None)
  Receive Date: 20250106
  Receipt Date: 20250106
  Transmission Date: 20250409
  Serious: Yes (Other)
  Sender: FDA-CTU
  Company Number: None

PATIENT
  Age: 61 Year
  Sex: Female

DRUGS (1)
  1. VIBERZI [Suspect]
     Active Substance: ELUXADOLINE

REACTIONS (11)
  - Rash [None]
  - Pain of skin [None]
  - Headache [None]
  - Foreign body sensation in eyes [None]
  - Arthralgia [None]
  - Fatigue [None]
  - Pyrexia [None]
  - Peripheral swelling [None]
  - Aphthous ulcer [None]
  - Peripheral swelling [None]
  - Balance disorder [None]

NARRATIVE: CASE EVENT DATE: 20241213
